FAERS Safety Report 14569410 (Version 6)
Quarter: 2018Q2

REPORT INFORMATION
  Report Type: Spontaneous
  Country: FR (occurrence: FR)
  Receive Date: 20180223
  Receipt Date: 20180626
  Transmission Date: 20180711
  Serious: Yes (Other)
  Sender: FDA-Public Use
  Company Number: PHHY2018FR029895

PATIENT
  Age: 81 Year
  Sex: Female
  Weight: 55 kg

DRUGS (8)
  1. FORMOTEROL [Suspect]
     Active Substance: FORMOTEROL
     Indication: DYSPNOEA
     Dosage: 24 UG, QD
     Route: 055
  2. LORAZEPAM. [Concomitant]
     Active Substance: LORAZEPAM
     Indication: PRODUCT USED FOR UNKNOWN INDICATION
     Route: 065
  3. PERINDOPRIL [Concomitant]
     Active Substance: PERINDOPRIL
     Indication: PRODUCT USED FOR UNKNOWN INDICATION
     Route: 065
  4. VENTOLINE [Concomitant]
     Active Substance: ALBUTEROL
     Indication: PRODUCT USED FOR UNKNOWN INDICATION
     Route: 065
  5. FORMOTEROL [Suspect]
     Active Substance: FORMOTEROL
     Dosage: 24 UG, QD
     Route: 055
  6. BECLOJET [Concomitant]
     Active Substance: BECLOMETHASONE DIPROPIONATE
     Indication: PRODUCT USED FOR UNKNOWN INDICATION
     Dosage: 120 UG, UNK
     Route: 065
  7. FORADIL [Suspect]
     Active Substance: FORMOTEROL FUMARATE
     Indication: DYSPNOEA
     Dosage: 2 DF, QD
     Route: 055
     Dates: start: 20120405
  8. FORADIL [Suspect]
     Active Substance: FORMOTEROL FUMARATE
     Dosage: 2 DF, QD
     Route: 055

REACTIONS (5)
  - Discomfort [Unknown]
  - Cough [Not Recovered/Not Resolved]
  - Choking sensation [Unknown]
  - Foreign body aspiration [Unknown]
  - Device malfunction [Unknown]

NARRATIVE: CASE EVENT DATE: 201709
